FAERS Safety Report 16843729 (Version 1)
Quarter: 2019Q3

REPORT INFORMATION
  Report Type: Spontaneous
  Country: PK (occurrence: PK)
  Receive Date: 20190924
  Receipt Date: 20190924
  Transmission Date: 20191005
  Serious: Yes (Hospitalization)
  Sender: FDA-Public Use
  Company Number: PK-ELI_LILLY_AND_COMPANY-PK201909008515

PATIENT
  Age: 63 Year
  Sex: Female

DRUGS (14)
  1. HYDRAZINE [Concomitant]
     Active Substance: HYDRAZINE SULFATE
     Indication: PRODUCT USED FOR UNKNOWN INDICATION
     Dosage: 25 MG, UNKNOWN
  2. MAXEN [Concomitant]
     Indication: PRODUCT USED FOR UNKNOWN INDICATION
     Dosage: 40 MG, UNKNOWN
  3. SPLENDID [Concomitant]
     Indication: ANGINA PECTORIS
     Dosage: 20 MG, BID
  4. OSNATE D [Concomitant]
     Indication: PRODUCT USED FOR UNKNOWN INDICATION
     Dosage: UNK, DAILY
  5. NERVIN [GABAPENTIN] [Concomitant]
     Indication: PRODUCT USED FOR UNKNOWN INDICATION
     Dosage: 0.5 MG, DAILY
  6. SUSTAC [GLYCERYL TRINITRATE] [Concomitant]
     Indication: ANGINA PECTORIS
     Dosage: 2.6 MG, BID
  7. CLOZARIL [Concomitant]
     Active Substance: CLOZAPINE
     Indication: PRODUCT USED FOR UNKNOWN INDICATION
     Dosage: 25 MG, UNKNOWN
  8. HUMALOG MIX50/50 [Suspect]
     Active Substance: INSULIN LISPRO
     Indication: DIABETES MELLITUS
     Dosage: 120 U, DAILY
     Route: 058
     Dates: start: 201709
  9. ASCARD [Concomitant]
     Indication: PLATELET DISORDER
     Dosage: 75 MG, EACH MORNING
  10. CO VALTEC [Concomitant]
     Indication: PRODUCT USED FOR UNKNOWN INDICATION
     Dosage: 160 MG, DAILY
  11. PLAVIX [Concomitant]
     Active Substance: CLOPIDOGREL BISULFATE
     Indication: ANGINA PECTORIS
     Dosage: 75 MG, DAILY
  12. NORVASC [Concomitant]
     Active Substance: AMLODIPINE BESYLATE
     Indication: BLOOD PRESSURE ABNORMAL
     Dosage: 10 MG, DAILY
  13. REVITALE B [Concomitant]
     Indication: MULTI-VITAMIN DEFICIENCY
     Dosage: UNK, DAILY
  14. NEBIL [Concomitant]
     Indication: PRODUCT USED FOR UNKNOWN INDICATION
     Dosage: 5 MG, DAILY

REACTIONS (3)
  - Injection site swelling [Not Recovered/Not Resolved]
  - Arterial occlusive disease [Recovering/Resolving]
  - Hyperglycaemia [Not Recovered/Not Resolved]

NARRATIVE: CASE EVENT DATE: 201904
